FAERS Safety Report 4325284-X (Version None)
Quarter: 2004Q1

REPORT INFORMATION
  Report Type: 
  Country: None (occurrence: None)
  Receive Date: 20040324
  Receipt Date: 20040310
  Transmission Date: 20041129
  Serious: Yes (Death, Hospitalization, Other)
  Sender: FDA-Public Use
  Company Number: 2004016192

PATIENT
  Sex: Male
  Weight: 34.0198 kg

DRUGS (8)
  1. QUINAPRIL HCL [Suspect]
     Indication: ILL-DEFINED DISORDER
     Dosage: 40 MG
  2. HYDROCHLOROTHIAZIDE [Suspect]
     Indication: ILL-DEFINED DISORDER
     Dosage: 50 MG (DAILY)
  3. WARFARIN SODIUM [Concomitant]
  4. ATENOLOL [Concomitant]
  5. NIFEDIPINE [Concomitant]
  6. AMITRIPTYLINE HYDROCHLORIDE [Concomitant]
  7. SIMVASTATIN [Concomitant]
  8. PREDNISONE [Concomitant]

REACTIONS (12)
  - ASTHENIA [None]
  - COGNITIVE DISORDER [None]
  - CYANOSIS [None]
  - FACIAL PALSY [None]
  - FALL [None]
  - INCONTINENCE [None]
  - MEMORY IMPAIRMENT [None]
  - OXYGEN SATURATION DECREASED [None]
  - PLEURAL EFFUSION [None]
  - PNEUMONIA ASPIRATION [None]
  - RENAL FAILURE CHRONIC [None]
  - RESPIRATORY FAILURE [None]
